FAERS Safety Report 7875833-X (Version None)
Quarter: 2011Q4

REPORT INFORMATION
  Report Type: 
  Country: None (occurrence: None)
  Receive Date: 20111031
  Receipt Date: 20111021
  Transmission Date: 20120403
  Serious: Yes (Other)
  Sender: FDA-Public Use
  Company Number: PHHY2011US94346

PATIENT

DRUGS (2)
  1. PAMIDRONATE DISODIUM [Suspect]
  2. ZOLEDRONIC [Suspect]
     Indication: OSTEOPOROSIS
     Dosage: 4 MG

REACTIONS (5)
  - INFLUENZA LIKE ILLNESS [None]
  - MYALGIA [None]
  - PYREXIA [None]
  - NAUSEA [None]
  - DEHYDRATION [None]
